FAERS Safety Report 19497850 (Version 1)
Quarter: 2021Q3

REPORT INFORMATION
  Report Type: Spontaneous
  Country: GB (occurrence: GB)
  Receive Date: 20210706
  Receipt Date: 20210706
  Transmission Date: 20211014
  Serious: Yes (Life-Threatening, Hospitalization, Other)
  Sender: FDA-Public Use
  Company Number: GB-SA-2021SA215785

PATIENT
  Age: 64 Year
  Sex: Male

DRUGS (1)
  1. ANTI?THYMOCYTE GLOBULIN (RABBIT) NOS [Suspect]
     Active Substance: LAPINE T-LYMPHOCYTE IMMUNE GLOBULIN
     Indication: IMMUNOSUPPRESSANT DRUG THERAPY
     Dosage: 3 MG/KG
     Route: 042

REACTIONS (13)
  - Azotaemia [Recovered/Resolved]
  - Acute hepatic failure [Recovered/Resolved]
  - Respiratory failure [Recovered/Resolved]
  - Anuria [Recovered/Resolved]
  - Metabolic acidosis [Recovered/Resolved]
  - Hypotension [Recovered/Resolved]
  - Shock [Recovered/Resolved]
  - Renal infarct [Recovered/Resolved]
  - Delirium [Recovered/Resolved]
  - Petechiae [Recovered/Resolved]
  - Disseminated intravascular coagulation [Recovered/Resolved]
  - Renal tubular necrosis [Recovered/Resolved]
  - Cytokine release syndrome [Recovered/Resolved]
